FAERS Safety Report 4542981-1 (Version None)
Quarter: 2005Q1

REPORT INFORMATION
  Report Type: 
  Country: None (occurrence: None)
  Receive Date: 20050103
  Receipt Date: 20041220
  Transmission Date: 20050727
  Serious: Yes (Other)
  Sender: FDA-Public Use
  Company Number: DE-JNJFOC-20041205642

PATIENT
  Age: 27 Year
  Sex: Male

DRUGS (2)
  1. REMICADE [Suspect]
     Indication: ANKYLOSING SPONDYLITIS
     Dosage: TOTAL OF FIVE INFUSIONS
     Route: 042
  2. LANTAREL [Concomitant]

REACTIONS (3)
  - CONFUSIONAL STATE [None]
  - INFUSION RELATED REACTION [None]
  - PALPITATIONS [None]
